FAERS Safety Report 9330816 (Version 1)
Quarter: 2013Q2

REPORT INFORMATION
  Report Type: Spontaneous
  Country: IE (occurrence: IE)
  Receive Date: 20130605
  Receipt Date: 20130605
  Transmission Date: 20140414
  Serious: Yes (Hospitalization, Other)
  Sender: FDA-Public Use
  Company Number: IE-JNJFOC-20130519852

PATIENT
  Age: 4 Year
  Sex: Female

DRUGS (9)
  1. REMICADE [Suspect]
     Indication: CROHN^S DISEASE
     Dosage: 1ST DOSE
     Route: 042
     Dates: start: 20130104
  2. REMICADE [Suspect]
     Indication: CROHN^S DISEASE
     Dosage: THIRD DOSE
     Route: 042
     Dates: start: 20130215
  3. REMICADE [Suspect]
     Indication: CROHN^S DISEASE
     Route: 042
     Dates: start: 20130118
  4. REMICADE [Suspect]
     Indication: CROHN^S DISEASE
     Dosage: 4TH DOSE, AFTER FIRST 5 ML, RATE SLOWED TO 60 ML/HR FOR FIRST HOUR, 120 ML//HR FOR REMAINDER
     Route: 042
     Dates: start: 20130405, end: 20130405
  5. METRONIDAZOLE [Concomitant]
     Indication: CROHN^S DISEASE
     Route: 048
     Dates: start: 20130402
  6. CHLORPHENIRAMINE [Concomitant]
     Indication: PREMEDICATION
     Route: 042
     Dates: start: 20130405
  7. HYDROCORTISONE [Concomitant]
     Indication: PREMEDICATION
     Route: 042
     Dates: start: 20130405
  8. CIPROFLOXACIN [Concomitant]
     Indication: CROHN^S DISEASE
     Route: 048
     Dates: start: 20130402
  9. 6 MERCAPTOPURINE [Concomitant]
     Indication: CROHN^S DISEASE
     Route: 048
     Dates: start: 20130104

REACTIONS (4)
  - Flushing [Recovered/Resolved]
  - Infusion related reaction [Recovered/Resolved]
  - Vomiting [Recovered/Resolved]
  - Faecal incontinence [Recovered/Resolved]
